FAERS Safety Report 12124391 (Version 2)
Quarter: 2016Q1

REPORT INFORMATION
  Report Type: Spontaneous
  Country: IE (occurrence: IE)
  Receive Date: 20160229
  Receipt Date: 20160302
  Transmission Date: 20160526
  Serious: Yes (Life-Threatening, Hospitalization, Other)
  Sender: FDA-Public Use
  Company Number: IE-JNJFOC-20160216511

PATIENT
  Age: 26 Year
  Sex: Female

DRUGS (2)
  1. PARACETAMOL [Suspect]
     Active Substance: ACETAMINOPHEN
     Indication: PRODUCT USED FOR UNKNOWN INDICATION
     Route: 065
  2. PARACETAMOL [Suspect]
     Active Substance: ACETAMINOPHEN
     Route: 065

REACTIONS (17)
  - Hepatic necrosis [Unknown]
  - Systemic inflammatory response syndrome [Unknown]
  - Overdose [Unknown]
  - Metabolic acidosis [Unknown]
  - Brain oedema [Unknown]
  - Sepsis [Unknown]
  - Colectomy [Unknown]
  - Hepatic artery thrombosis [Unknown]
  - Ventricular tachycardia [Unknown]
  - Hypoglycaemia [Unknown]
  - Arterial thrombosis [Unknown]
  - Liver transplant [Unknown]
  - Hepatectomy [Unknown]
  - Hepatotoxicity [Unknown]
  - Acute hepatic failure [Unknown]
  - Ischaemia [Unknown]
  - Encephalopathy [Unknown]
